FAERS Safety Report 7247283-0 (Version None)
Quarter: 2011Q1

REPORT INFORMATION
  Report Type: 
  Country: None (occurrence: None)
  Receive Date: 20110127
  Receipt Date: 20110124
  Transmission Date: 20110831
  Serious: Yes (Hospitalization)
  Sender: FDA-Public Use
  Company Number: A0905855A

PATIENT
  Age: 69 Year
  Sex: Female

DRUGS (4)
  1. PROAIR HFA [Concomitant]
  2. SPIRIVA [Concomitant]
  3. ADVAIR [Suspect]
     Indication: CHRONIC OBSTRUCTIVE PULMONARY DISEASE
     Route: 055
     Dates: start: 20060101, end: 20101231
  4. VERAPAMIL [Concomitant]

REACTIONS (10)
  - VOMITING [None]
  - CONSTIPATION [None]
  - PAIN [None]
  - RETCHING [None]
  - CARDIOVASCULAR DISORDER [None]
  - MECHANICAL VENTILATION [None]
  - INTESTINAL RESECTION [None]
  - ENDOTRACHEAL INTUBATION [None]
  - DIVERTICULITIS [None]
  - HYPERTENSION [None]
